FAERS Safety Report 4743957-1 (Version None)
Quarter: 2005Q3

REPORT INFORMATION
  Report Type: 
  Country: None (occurrence: None)
  Receive Date: 20050809
  Receipt Date: 20050725
  Transmission Date: 20060218
  Serious: Yes (Death, Hospitalization)
  Sender: FDA-Public Use
  Company Number: HQWYE443425JUL05

PATIENT
  Age: 48 Year
  Sex: Female

DRUGS (5)
  1. PANTOPRAZOLE SODIUM [Suspect]
     Dosage: 20 MG 1X PER 1 DAY ORAL
     Route: 048
     Dates: end: 20050315
  2. ARIMIDEX ^ZENECA^ (ANASTROZOLE, ) [Suspect]
     Indication: BREAST CANCER
     Dosage: 1 MG 1X PER 1 DAY ORAL
     Route: 048
     Dates: start: 20050115, end: 20050315
  3. LYTOS (CLODRONATE DISODIUM, ) [Suspect]
     Indication: BONE NEOPLASM MALIGNANT
     Dosage: 1040 MG 1X PER 1 DAY ORAL
     Route: 048
     Dates: end: 20050315
  4. LYTOS (CLODRONATE DISODIUM, ) [Suspect]
     Indication: METASTASIS
     Dosage: 1040 MG 1X PER 1 DAY ORAL
     Route: 048
     Dates: end: 20050315
  5. ATORVASTATIN CALCIUM [Suspect]
     Dosage: 10 MG 1X PER 1 DAY ORAL
     Route: 048
     Dates: end: 20050315

REACTIONS (7)
  - ASCITES [None]
  - HEPATIC ENCEPHALOPATHY [None]
  - HEPATIC FAILURE [None]
  - HYPERKALAEMIA [None]
  - HYPONATRAEMIA [None]
  - METASTASES TO LIVER [None]
  - PLEURAL EFFUSION [None]
